FAERS Safety Report 4952304-1 (Version None)
Quarter: 2006Q1

REPORT INFORMATION
  Report Type: 
  Country: None (occurrence: None)
  Receive Date: 20060320
  Receipt Date: 20060306
  Transmission Date: 20060701
  Serious: Yes (Death)
  Sender: FDA-Public Use
  Company Number: 06H-163-0306220-00

PATIENT
  Age: 5 Year
  Sex: Male

DRUGS (1)
  1. ENDRATE [Suspect]
     Indication: AUTISM
     Dates: start: 20050801, end: 20050801

REACTIONS (6)
  - CEREBRAL ISCHAEMIA [None]
  - HYPOCALCAEMIA [None]
  - HYPOTONIA [None]
  - INJURY [None]
  - MYOCARDIAL INFARCTION [None]
  - PROCEDURAL COMPLICATION [None]
